FAERS Safety Report 4604892-2 (Version None)
Quarter: 2005Q1

REPORT INFORMATION
  Report Type: 
  Country: None (occurrence: None)
  Receive Date: 20050310
  Receipt Date: 20050310
  Transmission Date: 20050727
  Serious: Yes (Hospitalization)
  Sender: FDA-Public Use
  Company Number: None

PATIENT
  Age: 56 Year
  Sex: Male
  Weight: 65.7 kg

DRUGS (14)
  1. ALEMTUZAMAB    30 MG    BERLEX [Suspect]
     Indication: PANCREAS TRANSPLANT
     Dosage: 30 MG  INTRAVENOU
     Route: 042
     Dates: start: 20050213, end: 20050225
  2. ALEMTUZAMAB    30 MG    BERLEX [Suspect]
     Indication: RENAL TRANSPLANT
     Dosage: 30 MG  INTRAVENOU
     Route: 042
     Dates: start: 20050213, end: 20050225
  3. CELLCEPT [Concomitant]
  4. VALCYTE [Concomitant]
  5. AMIODARONE [Concomitant]
  6. MYCELEX [Concomitant]
  7. ASPIRIN [Concomitant]
  8. CALCIUM CARBONATE [Concomitant]
  9. COLACE [Concomitant]
  10. TYLENOL (CAPLET) [Concomitant]
  11. ARANESP [Concomitant]
  12. FLAGYL [Concomitant]
  13. PROTONIX [Concomitant]
  14. BACTRIM [Concomitant]

REACTIONS (2)
  - DIARRHOEA [None]
  - SMALL INTESTINAL OBSTRUCTION [None]
